FAERS Safety Report 20824727 (Version 1)
Quarter: 2022Q2

REPORT INFORMATION
  Report Type: Spontaneous
  Country: FR (occurrence: FR)
  Receive Date: 20220513
  Receipt Date: 20220513
  Transmission Date: 20220721
  Serious: Yes (Hospitalization)
  Sender: FDA-Public Use
  Company Number: None

PATIENT
  Age: 86 Year
  Sex: Female
  Weight: 86.7 kg

DRUGS (7)
  1. PAROXETINE HYDROCHLORIDE [Suspect]
     Active Substance: PAROXETINE HYDROCHLORIDE
     Indication: Mixed anxiety and depressive disorder
     Dosage: CHLORHYDRATE DE PAROXETINE ANHYDRE, UNIT DOSE: 20 MG, FREQUENCY TIME : 1 DAY
     Route: 048
     Dates: start: 2018
  2. ELIQUIS [Suspect]
     Active Substance: APIXABAN
     Indication: Atrial fibrillation
     Dosage: STRENGTH: 5 MG, UNIT DOSE: 10 MG, FREQUENCY TIME : 1 DAY
     Route: 048
     Dates: end: 20211229
  3. BISOPROLOL FUMARATE [Concomitant]
     Active Substance: BISOPROLOL FUMARATE
     Dosage: BISOPROLOL (HEMIFUMARATE DE)
  4. DIGOXIN [Concomitant]
     Active Substance: DIGOXIN
  5. SPIRONOLACTONE [Concomitant]
     Active Substance: SPIRONOLACTONE
  6. CLOTIAZEPAM [Concomitant]
     Active Substance: CLOTIAZEPAM
  7. JANUVIA [Concomitant]
     Active Substance: SITAGLIPTIN PHOSPHATE

REACTIONS (1)
  - Haematoma muscle [Recovered/Resolved with Sequelae]

NARRATIVE: CASE EVENT DATE: 20211228
